FAERS Safety Report 19097150 (Version 1)
Quarter: 2021Q2

REPORT INFORMATION
  Report Type: Spontaneous
  Country: US (occurrence: US)
  Receive Date: 20210406
  Receipt Date: 20210406
  Transmission Date: 20210717
  Serious: No
  Sender: FDA-Public Use
  Company Number: None

PATIENT
  Age: 59 Year
  Sex: Male
  Weight: 83.91 kg

DRUGS (1)
  1. CASIRIVIMAB/IMDEVIMAB (EUA) (CASIRIVIMAB 1200MG/IMDEVIMAB 1200MG (EUA)) [Suspect]
     Active Substance: CASIRIVIMAB\IMDEVIMAB
     Indication: COVID-19 TREATMENT
     Dosage: ?          OTHER DOSE:1200/1200 MG;OTHER ROUTE:IV?
     Route: 042
     Dates: start: 20210402, end: 20210402

REACTIONS (4)
  - Pruritus [None]
  - Dermatitis [None]
  - Urticaria [None]
  - Rash maculo-papular [None]

NARRATIVE: CASE EVENT DATE: 20210403
